FAERS Safety Report 10455503 (Version 1)
Quarter: 2014Q3

REPORT INFORMATION
  Report Type: Spontaneous
  Country: US (occurrence: None)
  Receive Date: 20140915
  Receipt Date: 20140915
  Transmission Date: 20150326
  Serious: Yes (Hospitalization, Other)
  Sender: FDA-Public Use
  Company Number: None

PATIENT
  Age: 58 Year
  Sex: Female

DRUGS (10)
  1. HUMALOG PEN [Concomitant]
     Active Substance: INSULIN LISPRO
  2. MAGNESIUM OXIDE. [Concomitant]
     Active Substance: MAGNESIUM OXIDE
  3. INVOKANA [Suspect]
     Active Substance: CANAGLIFLOZIN
     Indication: BLOOD GLUCOSE INCREASED
     Dosage: 1 TABLET QD
     Dates: start: 20140620, end: 20140704
  4. CARVEDILOL. [Concomitant]
     Active Substance: CARVEDILOL
  5. TIKOSYN [Concomitant]
     Active Substance: DOFETILIDE
  6. LISINOPRIL. [Concomitant]
     Active Substance: LISINOPRIL
  7. LEVEMIR [Concomitant]
     Active Substance: INSULIN DETEMIR
  8. SIMVASTATIN. [Concomitant]
     Active Substance: SIMVASTATIN
  9. DIGOXIN. [Concomitant]
     Active Substance: DIGOXIN
  10. POTASSIUM [Concomitant]
     Active Substance: POTASSIUM

REACTIONS (1)
  - Renal failure acute [None]

NARRATIVE: CASE EVENT DATE: 20140704
